FAERS Safety Report 21904073 (Version 5)
Quarter: 2023Q1

REPORT INFORMATION
  Report Type: Spontaneous
  Country: IT (occurrence: IT)
  Receive Date: 20230124
  Receipt Date: 20230328
  Transmission Date: 20230417
  Serious: Yes (Other)
  Sender: FDA-Public Use
  Company Number: IT-002147023-NVSC2023IT012588

PATIENT
  Sex: Male

DRUGS (1)
  1. KESIMPTA [Suspect]
     Active Substance: OFATUMUMAB
     Indication: Relapsing multiple sclerosis
     Dosage: 20 MG, QMO (INIEZIONE 20/10, POI DOPO 1 SETTTIMANA , DOPO 2 SETTIMANE E DOPO 4 SETTIMANE, QUINDI AL
     Route: 058
     Dates: start: 20221020, end: 20221121

REACTIONS (11)
  - Cytomegalovirus infection [Recovered/Resolved]
  - Lymphocytosis [Recovered/Resolved]
  - Cytomegalovirus hepatitis [Recovered/Resolved]
  - Bronchitis [Unknown]
  - Cough [Recovered/Resolved]
  - Pyrexia [Recovered/Resolved]
  - Nausea [Recovered/Resolved]
  - Chest discomfort [Recovered/Resolved]
  - Fatigue [Recovered/Resolved]
  - Back pain [Recovered/Resolved]
  - Paternal exposure during pregnancy [Unknown]

NARRATIVE: CASE EVENT DATE: 20221020
